FAERS Safety Report 7531479-4 (Version None)
Quarter: 2011Q2

REPORT INFORMATION
  Report Type: 
  Country: None (occurrence: None)
  Receive Date: 20110608
  Receipt Date: 20110526
  Transmission Date: 20111010
  Serious: Yes (Hospitalization)
  Sender: FDA-Public Use
  Company Number: IT-ASTRAZENECA-2011SE32558

PATIENT
  Sex: Male

DRUGS (1)
  1. PROPOFOL [Suspect]
     Route: 042

REACTIONS (3)
  - SOPOR [None]
  - PSYCHOMOTOR HYPERACTIVITY [None]
  - HALLUCINATION [None]
